FAERS Safety Report 13921120 (Version 1)
Quarter: 2017Q3

REPORT INFORMATION
  Report Type: Spontaneous
  Country: IE (occurrence: IE)
  Receive Date: 20170830
  Receipt Date: 20170830
  Transmission Date: 20171127
  Serious: Yes (Hospitalization)
  Sender: FDA-Public Use
  Company Number: IE-VISTAPHARM, INC.-VER201708-000403

PATIENT
  Age: 42 Year
  Sex: Female
  Weight: 47 kg

DRUGS (1)
  1. HYDROCODONE AND ACETAMINOPHEN [Suspect]
     Active Substance: ACETAMINOPHEN\HYDROCODONE
     Dosage: 35 ? 500 MG TABLETS, GIVING PARACETAMOL CONCENTRATION BY BODY WEIGHT OF 372 MG/KG

REACTIONS (2)
  - Cardiotoxicity [Unknown]
  - Intentional overdose [Unknown]
